FAERS Safety Report 9049616 (Version 1)
Quarter: 2013Q1

REPORT INFORMATION
  Report Type: Spontaneous
  Country: US (occurrence: US)
  Receive Date: 20130205
  Receipt Date: 20130205
  Transmission Date: 20140127
  Serious: Yes (Hospitalization)
  Sender: FDA-Public Use
  Company Number: US-ALEXION-A201300079

PATIENT
  Sex: Female

DRUGS (16)
  1. SOLIRIS 300MG [Suspect]
     Indication: HAEMOLYTIC URAEMIC SYNDROME
     Dosage: UNK
     Route: 042
     Dates: start: 201212
  2. PREDNISONE [Concomitant]
     Dosage: 20 MG, QD
  3. LABETALOL [Concomitant]
     Dosage: 400 MG, TID
     Route: 048
  4. LORAZEPAM [Concomitant]
     Dosage: 1 MG, BID
     Route: 048
  5. CLONIDINE [Concomitant]
     Dosage: 0.2 MG, TID
     Route: 048
  6. TOPAMAX [Concomitant]
     Dosage: 50 MG, BID
  7. AMLODIPINE [Concomitant]
     Dosage: 10 MG, QD
     Route: 048
  8. LORTAB [Concomitant]
     Dosage: UNK, PRN
     Route: 048
  9. FLUCONAZOLE [Concomitant]
     Dosage: 200 MG, QD
     Route: 048
  10. NEXIUM [Concomitant]
     Dosage: 40 MG, UNK
     Route: 048
  11. VITAMIN D [Concomitant]
     Dosage: 50000 IU, QW
     Route: 048
  12. HYDRALAZINE [Concomitant]
     Dosage: 100 MG, TID
     Route: 048
  13. LEVETIRACETAM [Concomitant]
     Dosage: 1000 MG, BID
     Route: 048
  14. RITUXIMAB [Concomitant]
  15. IMMUNOGLOBULIN [Concomitant]
     Route: 042
  16. CYCLOPHOSPHAMIDE [Concomitant]
     Dosage: UNK
     Dates: start: 20121218

REACTIONS (3)
  - Device related infection [Recovering/Resolving]
  - Sinus congestion [Unknown]
  - Cough [Unknown]
